FAERS Safety Report 19488321 (Version 1)
Quarter: 2021Q3

REPORT INFORMATION
  Report Type: Other
  Country: IN (occurrence: IN)
  Receive Date: 20210702
  Receipt Date: 20210702
  Transmission Date: 20211014
  Serious: Yes (Death, Life-Threatening, Hospitalization)
  Sender: FDA-Public Use
  Company Number: IN-NOSTRUM LABORATORIES, INC.-2113451

PATIENT
  Age: 32 Year
  Sex: Female

DRUGS (1)
  1. RANITIDINE HYDROCHLORIDE. [Suspect]
     Active Substance: RANITIDINE HYDROCHLORIDE
     Indication: PROPHYLAXIS
     Route: 042

REACTIONS (5)
  - Cardiac arrest [Recovered/Resolved]
  - Cardio-respiratory arrest [Fatal]
  - Supraventricular tachycardia [Not Recovered/Not Resolved]
  - Respiratory failure [Recovered/Resolved]
  - Shock [Recovered/Resolved]
